FAERS Safety Report 4850391-2 (Version None)
Quarter: 2005Q4

REPORT INFORMATION
  Report Type: 
  Country: None (occurrence: None)
  Receive Date: 20051125
  Receipt Date: 20050929
  Transmission Date: 20060501
  Serious: Yes (Hospitalization)
  Sender: FDA-Public Use
  Company Number: US-JNJFOC-20050907047

PATIENT
  Age: 50 Year
  Sex: Male

DRUGS (1)
  1. LEVAQUIN [Suspect]
     Indication: BRONCHITIS
     Dosage: 750 MG, 1 IN 1 DAY
     Dates: start: 20050901, end: 20050901

REACTIONS (2)
  - HEART RATE INCREASED [None]
  - VENTRICULAR TACHYCARDIA [None]
